FAERS Safety Report 5388129-5 (Version None)
Quarter: 2007Q3

REPORT INFORMATION
  Report Type: 
  Country: None (occurrence: None)
  Receive Date: 20070716
  Receipt Date: 20061206
  Transmission Date: 20080115
  Serious: No
  Sender: FDA-Public Use
  Company Number: A0630378A

PATIENT
  Age: 28 Year
  Sex: Female

DRUGS (1)
  1. NICORETTE [Suspect]
     Dates: start: 20061204, end: 20061204

REACTIONS (4)
  - HEADACHE [None]
  - MALAISE [None]
  - RETCHING [None]
  - VOMITING [None]
